FAERS Safety Report 19585136 (Version 1)
Quarter: 2021Q3

REPORT INFORMATION
  Report Type: Spontaneous
  Country: ES (occurrence: ES)
  Receive Date: 20210720
  Receipt Date: 20210720
  Transmission Date: 20211014
  Serious: Yes (Other)
  Sender: FDA-Public Use
  Company Number: ES-MYLANLABS-2021M1043511

PATIENT
  Age: 79 Year
  Sex: Male

DRUGS (10)
  1. LORMETAZEPAM NORMON [Concomitant]
     Active Substance: LORMETAZEPAM
     Indication: RECTAL CANCER
     Dosage: 2 MILLIGRAM, QD
     Route: 048
     Dates: start: 20201104
  2. TORASEMIDA CINFA [Concomitant]
     Active Substance: TORSEMIDE
     Indication: CARDIAC FAILURE
     Dosage: 5 MILLIGRAM, QD
     Route: 048
     Dates: start: 20090715
  3. FERROUS SULFATE. [Concomitant]
     Active Substance: FERROUS SULFATE
     Indication: PERNICIOUS ANAEMIA
     Dosage: 105 MILLIGRAM, QD
     Route: 048
     Dates: start: 20201126
  4. AMLODIPINO STADA [Concomitant]
     Indication: HYPERTENSION
     Dosage: 10 MILLIGRAM, QD
     Route: 048
     Dates: start: 20201021
  5. ATORVASTATINA STADA [Concomitant]
     Indication: TYPE IIA HYPERLIPIDAEMIA
     Dosage: 20 MILLIGRAM, QD
     Route: 048
     Dates: start: 20161103
  6. SERTRALINE [Suspect]
     Active Substance: SERTRALINE HYDROCHLORIDE
     Indication: DEPRESSION
     Dosage: 1 DOSAGE FORM, QD
     Route: 048
     Dates: start: 20201201, end: 20210113
  7. IRBESARTAN ALTER [Concomitant]
     Indication: HYPERTENSION
     Dosage: 300 MILLIGRAM, QD
     Route: 048
     Dates: start: 20120419
  8. NOVORAPID [Concomitant]
     Active Substance: INSULIN ASPART
     Indication: TYPE 1 DIABETES MELLITUS
     Dosage: 15 INTERNATIONAL UNIT, QD
     Route: 058
     Dates: start: 20200725
  9. OPTOVITE B12 [Concomitant]
     Active Substance: CYANOCOBALAMIN
     Indication: VITAMIN B COMPLEX DEFICIENCY
     Dosage: 1 MILLIGRAM, QD
     Route: 030
     Dates: start: 20200725
  10. TRESIBA [Concomitant]
     Active Substance: INSULIN DEGLUDEC
     Indication: TYPE 1 DIABETES MELLITUS
     Dosage: 40 INTERNATIONAL UNIT, QD
     Route: 058
     Dates: start: 20161104

REACTIONS (2)
  - Dizziness [Recovering/Resolving]
  - Balance disorder [Recovering/Resolving]

NARRATIVE: CASE EVENT DATE: 20201214
